FAERS Safety Report 7183368-5 (Version None)
Quarter: 2010Q4

REPORT INFORMATION
  Report Type: 
  Country: None (occurrence: None)
  Receive Date: 20101220
  Receipt Date: 20101220
  Transmission Date: 20110411
  Serious: Yes (Hospitalization)
  Sender: FDA-Public Use
  Company Number: None

PATIENT
  Age: 75 Year
  Sex: Female
  Weight: 79.5 kg

DRUGS (24)
  1. COUMADIN [Suspect]
     Indication: ATRIAL FIBRILLATION
     Dosage: 2.5 / 5MG SMTWTHF/ SAT PO CHRONIC
     Route: 048
  2. ASPIRIN [Suspect]
     Indication: ATRIAL FIBRILLATION
     Dosage: 81MG DAILY PO CHRONIC
     Route: 048
  3. LASIX [Concomitant]
  4. MACROBID [Concomitant]
  5. REQUIP [Concomitant]
  6. SOTALOL [Concomitant]
  7. VIVELLE [Concomitant]
  8. LOPID [Concomitant]
  9. ACTONEL [Concomitant]
  10. CRESTOR [Concomitant]
  11. ROPINIROLE [Concomitant]
  12. UROXATRAL [Concomitant]
  13. LIMBITROL [Concomitant]
  14. IRON SULFATETHIAMIN COMPOUND TAB [Concomitant]
  15. SYNTHROID [Concomitant]
  16. M.V.I. [Concomitant]
  17. VIT E [Concomitant]
  18. VIT D3 [Concomitant]
  19. FISH OIL [Concomitant]
  20. VALIUM [Concomitant]
  21. NEXIUM [Concomitant]
  22. ULTRAM [Concomitant]
  23. PERCOCET [Concomitant]
  24. CIPRO [Concomitant]

REACTIONS (4)
  - GASTROINTESTINAL HAEMORRHAGE [None]
  - HAEMATOCRIT DECREASED [None]
  - HAEMOGLOBIN DECREASED [None]
  - INTERNATIONAL NORMALISED RATIO INCREASED [None]
